FAERS Safety Report 7148152-7 (Version None)
Quarter: 2010Q4

REPORT INFORMATION
  Report Type: 
  Country: None (occurrence: None)
  Receive Date: 20101207
  Receipt Date: 20101207
  Transmission Date: 20110411
  Serious: No
  Sender: FDA-Public Use
  Company Number: None

PATIENT
  Age: 39 Year
  Sex: Male
  Weight: 108 kg

DRUGS (1)
  1. RISPERIDONE [Suspect]
     Dosage: 50 MG OTHER IM
     Route: 030
     Dates: start: 20090205, end: 20101015

REACTIONS (1)
  - THROMBOCYTOPENIA [None]
